FAERS Safety Report 18810990 (Version 1)
Quarter: 2021Q1

REPORT INFORMATION
  Report Type: Spontaneous
  Country: UA (occurrence: GB)
  Receive Date: 20210129
  Receipt Date: 20210129
  Transmission Date: 20210419
  Serious: Yes (Death)
  Sender: FDA-Public Use
  Company Number: UA-BAYER-2021-015427

PATIENT
  Age: 32 Year
  Sex: Male

DRUGS (1)
  1. NEXAVAR [Suspect]
     Active Substance: SORAFENIB
     Indication: ACUTE MYELOID LEUKAEMIA RECURRENT
     Dosage: 400 MG, BID
     Dates: start: 2020

REACTIONS (4)
  - Acute myeloid leukaemia [Fatal]
  - Product use in unapproved indication [None]
  - Off label use [None]
  - Drug ineffective for unapproved indication [None]
